FAERS Safety Report 15598592 (Version 2)
Quarter: 2018Q4

REPORT INFORMATION
  Report Type: Report from Study
  Country: MX (occurrence: MX)
  Receive Date: 20181108
  Receipt Date: 20181116
  Transmission Date: 20190205
  Serious: Yes (Other)
  Sender: FDA-Public Use
  Company Number: PHHY2018MX137143

PATIENT
  Age: 71 Year
  Sex: Female
  Weight: 70 kg

DRUGS (9)
  1. RIVOTRIL [Concomitant]
     Active Substance: CLONAZEPAM
     Dosage: 1 DF, QD (AT NIGHT) (15 YEARS APPROXIMATELY)
     Route: 065
  2. ASPIRIN PROTECT [Concomitant]
     Active Substance: ASPIRIN
     Indication: COAGULOPATHY
     Dosage: 1 DF, QD
     Route: 048
  3. CALCIO + D [Concomitant]
     Active Substance: CALCIUM CARBONATE\CHOLECALCIFEROL
     Indication: OSTEOPENIA
     Dosage: 2 DF, QD
     Route: 048
     Dates: start: 201806, end: 201806
  4. CONCOR [Concomitant]
     Active Substance: BISOPROLOL FUMARATE
     Indication: ARRHYTHMIA
     Dosage: 1 DF, QD
     Route: 048
  5. FOSAMAX PLUS D [Concomitant]
     Active Substance: ALENDRONATE SODIUM\CHOLECALCIFEROL
     Indication: OSTEOPENIA
     Dosage: 1 DF, QW
  6. GALVUS [Suspect]
     Active Substance: VILDAGLIPTIN
     Indication: BLOOD GLUCOSE INCREASED
     Dosage: 0.5 DF, QD (7 YEARS AGO)
     Route: 048
  7. GALVUS [Suspect]
     Active Substance: VILDAGLIPTIN
     Indication: GLYCOSYLATED HAEMOGLOBIN INCREASED
  8. ATORVASTATINA [Concomitant]
     Active Substance: ATORVASTATIN
     Indication: PRODUCT USED FOR UNKNOWN INDICATION
     Dosage: 0.5 DF, QD (AT NIGHT)
     Route: 065
  9. RIVOTRIL [Concomitant]
     Active Substance: CLONAZEPAM
     Indication: SLEEP DISORDER
     Dosage: 1 DF, QD (AT NIGHT) (15 YEARS APPROXIMATELY)
     Route: 065

REACTIONS (10)
  - Incontinence [Unknown]
  - Pain in extremity [Unknown]
  - Hypertension [Not Recovered/Not Resolved]
  - Wrong technique in product usage process [Unknown]
  - Gastritis [Recovered/Resolved]
  - Concomitant disease aggravated [Unknown]
  - Colitis [Recovered/Resolved]
  - Arrhythmia [Recovering/Resolving]
  - Rheumatoid arthritis [Unknown]
  - Prescribed underdose [Unknown]

NARRATIVE: CASE EVENT DATE: 201807
